FAERS Safety Report 4912528-6 (Version None)
Quarter: 2006Q1

REPORT INFORMATION
  Report Type: 
  Country: None (occurrence: None)
  Receive Date: 20060215
  Receipt Date: 20050614
  Transmission Date: 20060701
  Serious: No
  Sender: FDA-Public Use
  Company Number: US-GLAXOSMITHKLINE-A0562625A

PATIENT
  Sex: Female

DRUGS (5)
  1. VALTREX [Suspect]
     Dosage: 1G PER DAY
     Route: 048
  2. BIRTH CONTROL PILLS [Concomitant]
  3. ALLEGRA [Concomitant]
  4. FLONASE [Concomitant]
  5. IBUPROFEN [Concomitant]

REACTIONS (1)
  - DRUG INEFFECTIVE [None]
